FAERS Safety Report 25570622 (Version 1)
Quarter: 2025Q3

REPORT INFORMATION
  Report Type: Spontaneous
  Country: CN (occurrence: CN)
  Receive Date: 20250717
  Receipt Date: 20250717
  Transmission Date: 20251021
  Serious: Yes (Other)
  Sender: SANOFI AVENTIS
  Company Number: CN-SA-2025SA200489

PATIENT
  Age: 56 Year
  Sex: Male
  Weight: 60.2 kg

DRUGS (5)
  1. OXALIPLATIN [Suspect]
     Active Substance: OXALIPLATIN
     Indication: Gastric cancer
     Dosage: 180 MG, QD
     Route: 041
     Dates: start: 20250605, end: 20250605
  2. SINTILIMAB [Suspect]
     Active Substance: SINTILIMAB
     Indication: Immune enhancement therapy
     Dosage: 200 MG, QD
     Route: 041
     Dates: start: 20250604, end: 20250604
  3. GIMERACIL\OTERACIL\TEGAFUR [Suspect]
     Active Substance: GIMERACIL\OTERACIL POTASSIUM\TEGAFUR
     Indication: Gastric cancer
     Dosage: 50 MG, BID (Q3W)
     Route: 048
     Dates: start: 20250605, end: 20250618
  4. SODIUM CHLORIDE [Concomitant]
     Active Substance: SODIUM CHLORIDE
     Indication: Vehicle solution use
     Dosage: 100 MG, QD
     Route: 041
     Dates: start: 20250604, end: 20250604
  5. DEXTROSE [Concomitant]
     Active Substance: DEXTROSE MONOHYDRATE
     Indication: Vehicle solution use
     Dosage: 250 ML, QD
     Route: 041
     Dates: start: 20250605, end: 20250605

REACTIONS (2)
  - Hepatic failure [Recovering/Resolving]
  - Hepatic function abnormal [Recovering/Resolving]

NARRATIVE: CASE EVENT DATE: 20250625
